FAERS Safety Report 5463439-1 (Version None)
Quarter: 2007Q3

REPORT INFORMATION
  Report Type: 
  Country: None (occurrence: None)
  Receive Date: 20070920
  Receipt Date: 20070912
  Transmission Date: 20080115
  Serious: Yes (Hospitalization)
  Sender: FDA-Public Use
  Company Number: FR-PFIZER INC-2007076513

PATIENT
  Age: 81 Year
  Sex: Female

DRUGS (3)
  1. CELEBREX [Suspect]
     Indication: BACK PAIN
     Dosage: DAILY DOSE:200MG
  2. PREVISCAN [Concomitant]
  3. ANTIHYPERTENSIVES [Concomitant]

REACTIONS (3)
  - BACK PAIN [None]
  - PROTHROMBIN LEVEL DECREASED [None]
  - RED BLOOD CELL SEDIMENTATION RATE ABNORMAL [None]
